FAERS Safety Report 8795203 (Version 2)
Quarter: 2015Q2

REPORT INFORMATION
  Report Type: Report from Study
  Country: US (occurrence: US)
  Receive Date: 20120917
  Receipt Date: 20150406
  Transmission Date: 20150821
  Serious: Yes (Death)
  Sender: FDA-Public Use
  Company Number: US-ROCHE-1129305

PATIENT
  Age: 56 Year
  Sex: Male

DRUGS (8)
  1. CISPLATIN. [Concomitant]
     Active Substance: CISPLATIN
     Route: 042
  2. GEMZAR [Concomitant]
     Active Substance: GEMCITABINE HYDROCHLORIDE
     Route: 042
  3. KYTRIL [Concomitant]
     Active Substance: GRANISETRON HYDROCHLORIDE
     Route: 042
  4. AVASTIN [Suspect]
     Active Substance: BEVACIZUMAB
     Indication: MALIGNANT URINARY TRACT NEOPLASM
     Route: 042
     Dates: start: 20040720
  5. DECADRON [Concomitant]
     Active Substance: DEXAMETHASONE
     Route: 042
  6. IRESSA [Suspect]
     Active Substance: GEFITINIB
     Indication: PRODUCT USED FOR UNKNOWN INDICATION
     Route: 065
  7. AVASTIN [Suspect]
     Active Substance: BEVACIZUMAB
     Dosage: DAY 1 AND DAY 15
     Route: 042
     Dates: start: 20040819
  8. CELEBREX [Concomitant]
     Active Substance: CELECOXIB
     Route: 065

REACTIONS (16)
  - Fatigue [Unknown]
  - Death [Fatal]
  - Pain in extremity [Unknown]
  - Acne [Unknown]
  - Asthenia [Unknown]
  - Burning sensation [Unknown]
  - Hyperhidrosis [Unknown]
  - Rash [Unknown]
  - Dyspnoea exertional [Unknown]
  - Pyrexia [Unknown]
  - Platelet count decreased [Unknown]
  - Weight decreased [Unknown]
  - Feeling hot [Unknown]
  - Hyperkinesia [Unknown]
  - Insomnia [Unknown]
  - Proteinuria [Unknown]

NARRATIVE: CASE EVENT DATE: 20050208
